FAERS Safety Report 17507367 (Version 1)
Quarter: 2020Q1

REPORT INFORMATION
  Report Type: Spontaneous
  Country: US (occurrence: US)
  Receive Date: 20200306
  Receipt Date: 20200306
  Transmission Date: 20200409
  Serious: No
  Sender: FDA-Public Use
  Company Number: US-UCBSA-2019007735

PATIENT
  Age: 45 Year
  Sex: Male

DRUGS (1)
  1. BRIVIACT [Suspect]
     Active Substance: BRIVARACETAM
     Indication: EPILEPSY

REACTIONS (2)
  - Seizure [Unknown]
  - Drug ineffective [Unknown]
